FAERS Safety Report 7465219-4 (Version None)
Quarter: 2011Q2

REPORT INFORMATION
  Report Type: 
  Country: None (occurrence: None)
  Receive Date: 20110509
  Receipt Date: 20110504
  Transmission Date: 20111010
  Serious: Yes (Death)
  Sender: FDA-Public Use
  Company Number: PHHY2011PA37645

PATIENT
  Age: 61 Year
  Sex: Male

DRUGS (3)
  1. BIGAMOX [Concomitant]
  2. DICLOFENAC SODIUM [Suspect]
     Dosage: EVERY 6 HOURS
     Route: 047
     Dates: start: 20110429
  3. PREDNEFIN [Concomitant]

REACTIONS (1)
  - ANAPHYLACTIC SHOCK [None]
